FAERS Safety Report 7948730 (Version 3)
Quarter: 2019Q1

REPORT INFORMATION
  Report Type: Spontaneous
  Country: GB (occurrence: GB)
  Receive Date: 20110517
  Receipt Date: 20190103
  Transmission Date: 20190418
  Serious: Yes (Death, Hospitalization)
  Sender: FDA-Public Use
  Company Number: GB-PFIZER INC-HQWYE370702AUG07

PATIENT
  Age: 16 Month

DRUGS (1)
  1. IBUPROFEN. [Suspect]
     Active Substance: IBUPROFEN
     Dosage: 469 MG/KG, SINGLE
     Route: 048

REACTIONS (5)
  - Overdose [Fatal]
  - Apnoea [Not Recovered/Not Resolved]
  - Seizure [Not Recovered/Not Resolved]
  - Pneumonia aspiration [Not Recovered/Not Resolved]
  - Sepsis [Fatal]
